FAERS Safety Report 8172620-2 (Version None)
Quarter: 2012Q1

REPORT INFORMATION
  Report Type: 
  Country: None (occurrence: None)
  Receive Date: 20120229
  Receipt Date: 20120222
  Transmission Date: 20120608
  Serious: Yes (Other)
  Sender: FDA-Public Use
  Company Number: US-PFIZER INC-2012047945

PATIENT
  Sex: Male

DRUGS (1)
  1. SUTENT [Suspect]
     Dosage: 12.5 MG, 3X/DAY
     Route: 048
     Dates: start: 20110826

REACTIONS (1)
  - HAEMORRHAGE [None]
